FAERS Safety Report 8791485 (Version 1)
Quarter: 2012Q4

REPORT INFORMATION
  Report Type: Spontaneous
  Country: TR (occurrence: None)
  Receive Date: 20120912
  Receipt Date: 20120912
  Transmission Date: 20130627
  Serious: Yes (Hospitalization)
  Sender: FDA-Public Use
  Company Number: 2012MA010694

PATIENT

DRUGS (6)
  1. DIAZEPAM [Suspect]
     Indication: MUSCLE CONTRACTIONS INVOLUNTARY
     Route: 042
  2. ANTIBIOTIC [Concomitant]
  3. TETANUS VACCINE [Concomitant]
  4. TETANUS IMMUNOGLOBULINE [Concomitant]
  5. MIDAZOLAM [Concomitant]
  6. ATRACURIUM [Concomitant]

REACTIONS (1)
  - No therapeutic response [None]
